FAERS Safety Report 4941640-0 (Version None)
Quarter: 2006Q1

REPORT INFORMATION
  Report Type: 
  Country: None (occurrence: None)
  Receive Date: 20060307
  Receipt Date: 20060303
  Transmission Date: 20060701
  Serious: Yes (Hospitalization)
  Sender: FDA-Public Use
  Company Number: 2006-139158-NL

PATIENT
  Age: 70 Year
  Sex: Male

DRUGS (12)
  1. MIRTAZAPINE [Suspect]
     Indication: DEPRESSION
     Dosage: 30 MG QD ORAL
     Route: 048
     Dates: start: 20060201, end: 20060202
  2. DICLOFENAC SODIUM [Concomitant]
  3. LANTUS [Concomitant]
  4. METFORMIN HYDROCHLORIDE [Concomitant]
  5. DEXTROSE [Concomitant]
  6. ESOMEPRAZOLE [Concomitant]
  7. ATORVASTATIN CALCIUM [Concomitant]
  8. ATENOLOL [Concomitant]
  9. ACETAMINOPHEN [Concomitant]
  10. INSULIN LISPRO [Concomitant]
  11. LOSARTAN POTASSIUM [Concomitant]
  12. ACETYLSALICYLIC ACID SRT [Concomitant]

REACTIONS (3)
  - ATRIOVENTRICULAR BLOCK [None]
  - BRADYCARDIA [None]
  - HYPOTENSION [None]
